FAERS Safety Report 4627948-7 (Version None)
Quarter: 2005Q2

REPORT INFORMATION
  Report Type: 
  Country: None (occurrence: None)
  Receive Date: 20050401
  Receipt Date: 20050323
  Transmission Date: 20051028
  Serious: Yes (Death, Hospitalization)
  Sender: FDA-Public Use
  Company Number: 05-03-0470

PATIENT
  Age: 48 Year
  Sex: Female

DRUGS (1)
  1. CLOZAPINE [Suspect]
     Indication: SCHIZOPHRENIA
     Dosage: 700MG QD ORAL
     Route: 048
     Dates: start: 19991001, end: 20050101

REACTIONS (3)
  - LUNG NEOPLASM MALIGNANT [None]
  - METASTASES TO SPINE [None]
  - PNEUMONIA [None]
